FAERS Safety Report 4491788-2 (Version None)
Quarter: 2004Q4

REPORT INFORMATION
  Report Type: 
  Country: None (occurrence: None)
  Receive Date: 20041101
  Receipt Date: 20041022
  Transmission Date: 20050328
  Serious: Yes (Other)
  Sender: FDA-Public Use
  Company Number: 2004240489NL

PATIENT
  Sex: Male
  Weight: 2.1 kg

DRUGS (2)
  1. PROSTIN E2 [Suspect]
     Indication: LABOUR INDUCTION
     Dosage: 0, VAGINAL
     Route: 064
  2. LABETALOL HCL [Concomitant]

REACTIONS (6)
  - ABNORMAL LABOUR AFFECTING FOETUS [None]
  - APGAR SCORE LOW [None]
  - BRADYCARDIA FOETAL [None]
  - CONVULSION NEONATAL [None]
  - PREMATURE BABY [None]
  - SMALL FOR DATES BABY [None]
